FAERS Safety Report 4875882-X (Version None)
Quarter: 2006Q1

REPORT INFORMATION
  Report Type: 
  Country: None (occurrence: None)
  Receive Date: 20060109
  Receipt Date: 20051230
  Transmission Date: 20060701
  Serious: Yes (Hospitalization, Disabling)
  Sender: FDA-Public Use
  Company Number: US-MERCK-0601USA00159

PATIENT
  Age: 59 Year
  Sex: Male
  Weight: 125 kg

DRUGS (2)
  1. VIOXX [Suspect]
     Indication: ARTHRITIS
     Route: 048
     Dates: start: 20000101, end: 20040101
  2. [THERAPY UNSPECIFIED] [Concomitant]
     Route: 065

REACTIONS (9)
  - CARDIAC DISORDER [None]
  - LIMB INJURY [None]
  - MYOCARDIAL INFARCTION [None]
  - NECK INJURY [None]
  - NEPHROLITHIASIS [None]
  - NERVE COMPRESSION [None]
  - OVERDOSE [None]
  - SLEEP APNOEA SYNDROME [None]
  - THYROID DISORDER [None]
